FAERS Safety Report 9170881 (Version 2)
Quarter: 2013Q4

REPORT INFORMATION
  Report Type: Spontaneous
  Country: CN (occurrence: None)
  Receive Date: 20130311
  Receipt Date: 20131118
  Transmission Date: 20140711
  Serious: Yes (Hospitalization)
  Sender: FDA-Public Use
  Company Number: SYM-2013-01455

PATIENT
  Age: 67 Year
  Sex: Male

DRUGS (16)
  1. 5-FU (FLUOROURACIL) [Suspect]
     Indication: COLORECTAL CANCER METASTATIC
     Dosage: 718 MG, EVERY OTHER WEEK, INTRAVENOUS BOLUS
     Route: 040
     Dates: start: 20121109, end: 20121109
  2. BLINDED THERAPY (OTHER THERAPEUTIC PRODUCTS) (SOLUTION FOR INFUSION) (NULL) [Suspect]
     Indication: COLORECTAL CANCER METASTATIC
     Dosage: 140 MG, EVERY OTHER WEEK, INTRAVENOUS DRIP
     Route: 041
     Dates: start: 20130207, end: 20130207
  3. IRINOTECAN (IRNOTECAN) (SOLUTION FOR INFUSION) (IRINOTECAN) [Suspect]
     Indication: COLORECTAL CANCER METASTATIC
     Route: 041
     Dates: start: 20121109, end: 20121109
  4. LEUCOVORIN (FOLINIC ACID) (SOLUTION FOR INFUSION) (FOLIC ACID) [Concomitant]
     Indication: COLORECTAL CANCER METASTATIC
     Route: 041
     Dates: start: 20121109, end: 20121109
  5. DEXAMETHASONE (DEXAMETHASONE) (UNKNOWN) (DEXAMETHASONE) [Concomitant]
  6. OMEPRAZOLE (OMEPRAZOLE) (UNKNOWN) (OMERPRAZOLE) [Concomitant]
  7. ALONOSETRON HYDROCHLORIDE (PALONOSETRON HYDROCHLORIDE) (UNKNOWN) (PALONOSETRON HYDROCHLORIDE) [Concomitant]
  8. PROMETHAZINE (PROMETHAZINE) (UNKNOWN) (PROMETHAZINE) [Concomitant]
  9. MANNITOL (MANNITOL) (UNKNOWN) (MANNITOL) [Concomitant]
  10. MUPIROCIN (MUPIROCIN) (UNKNOWN) (MUPIROCIN) [Concomitant]
  11. LOPERAMIDE (LOPERAMIDE) (UNKNOWN) (LOPERAMIDE) [Concomitant]
  12. VALSARTAN (VALSARTAN) (UNKNOWN) (VALSARTAN) [Concomitant]
  13. PLENDIL (FELODIPINE) (UNKNOWN) (FELODIPINE) [Concomitant]
  14. HYOSCYAMINE (HYOSCYAMINE) (UNKNOWN) (HYOSCYAMINE) [Concomitant]
  15. IRBESARTAN (IBESARTAN) (UNKNOWN) (IRBESARTAN) [Concomitant]
  16. POTASSIUM CHLORIDE (POTASSIUM CHLORIDE) (UNKNOWN) (POTASSIUM CHLORIDE) [Concomitant]

REACTIONS (4)
  - Gastrointestinal haemorrhage [None]
  - Lower gastrointestinal haemorrhage [None]
  - Intestinal obstruction [None]
  - Oncologic complication [None]
